FAERS Safety Report 4496725-2 (Version None)
Quarter: 2004Q3

REPORT INFORMATION
  Report Type: 
  Country: None (occurrence: None)
  Receive Date: 20040923
  Receipt Date: 20040526
  Transmission Date: 20050211
  Serious: Yes (Other)
  Sender: FDA-Public Use
  Company Number: WAES 0405USA02015

PATIENT
  Sex: Female

DRUGS (2)
  1. INVANZ [Suspect]
     Indication: INFECTION
     Dosage: 1 GM/DAILY/IV
     Route: 042
     Dates: start: 20040524
  2. VANCOMYCIN [Concomitant]

REACTIONS (1)
  - GRAND MAL CONVULSION [None]
